FAERS Safety Report 19213908 (Version 4)
Quarter: 2021Q3

REPORT INFORMATION
  Report Type: Report from Study
  Country: JP (occurrence: JP)
  Receive Date: 20210504
  Receipt Date: 20210805
  Transmission Date: 20211014
  Serious: Yes (Life-Threatening)
  Sender: FDA-Public Use
  Company Number: JP-BAUSCH-BL-2021-015131

PATIENT
  Age: 5 Decade
  Sex: Female

DRUGS (2)
  1. CHOREAZINE TABLETS 12.5MG [Suspect]
     Active Substance: TETRABENAZINE
     Route: 048
     Dates: start: 20201017, end: 20201110
  2. CHOREAZINE TABLETS 12.5MG [Suspect]
     Active Substance: TETRABENAZINE
     Indication: HUNTINGTON^S DISEASE
     Route: 048
     Dates: start: 20180517

REACTIONS (1)
  - Subdural haematoma [Recovering/Resolving]

NARRATIVE: CASE EVENT DATE: 20201015
